FAERS Safety Report 11882463 (Version 1)
Quarter: 2015Q4

REPORT INFORMATION
  Report Type: Spontaneous
  Country: US (occurrence: None)
  Receive Date: 20151230
  Receipt Date: 20151230
  Transmission Date: 20160305
  Serious: No
  Sender: FDA-Public Use
  Company Number: None

PATIENT
  Age: 28 Year
  Sex: Female

DRUGS (3)
  1. GABAPENTIN. [Concomitant]
     Active Substance: GABAPENTIN
  2. VERAPAMIL [Concomitant]
     Active Substance: VERAPAMIL HYDROCHLORIDE
  3. SUMATRIPTAN 6MG/0.5ML INJECTION DR REDDY^S [Suspect]
     Active Substance: SUMATRIPTAN
     Indication: MIGRAINE
     Dosage: 0.5 ML (6MG)  PRN/AS NEEDED  SUBCUTANEOUS
     Route: 058
     Dates: start: 20151222, end: 20151228

REACTIONS (3)
  - Syncope [None]
  - Loss of consciousness [None]
  - Nausea [None]
